FAERS Safety Report 8620904-3 (Version None)
Quarter: 2012Q3

REPORT INFORMATION
  Report Type: 
  Country: None (occurrence: None)
  Receive Date: 20120824
  Receipt Date: 20120815
  Transmission Date: 20120928
  Serious: Yes (Hospitalization)
  Sender: FDA-Public Use
  Company Number: PHHY2012IT071430

PATIENT
  Sex: Female

DRUGS (6)
  1. NIMESULIDE HEXAL [Suspect]
     Indication: BACK PAIN
     Dosage: 100 MG
     Route: 048
     Dates: start: 20120725, end: 20120731
  2. VOLTAREN [Suspect]
     Indication: BACK PAIN
     Dosage: 100 MG, UNK
     Route: 048
     Dates: start: 20120801, end: 20120809
  3. BISOPROLOL FUMARATE [Concomitant]
     Indication: HYPERTENSION
     Dosage: 5 MG
     Route: 048
     Dates: start: 20030801, end: 20120809
  4. ACETYLSALICYLIC ACID SRT [Suspect]
     Indication: PLATELET AGGREGATION INHIBITION
     Dosage: 300 MG
     Route: 048
     Dates: start: 20020801, end: 20120809
  5. RAMIPRIL [Concomitant]
     Indication: HYPERTENSION
     Dosage: 2.5 MG
     Route: 048
     Dates: start: 20080801, end: 20120809
  6. ESCITALOPRAM [Concomitant]
     Indication: DEPRESSION
     Dosage: 10 MG
     Route: 048
     Dates: start: 20080801, end: 20120810

REACTIONS (2)
  - DUODENAL ULCER [None]
  - MELAENA [None]
